FAERS Safety Report 5107478-9 (Version None)
Quarter: 2006Q3

REPORT INFORMATION
  Report Type: 
  Country: None (occurrence: None)
  Receive Date: 20060919
  Receipt Date: 20060907
  Transmission Date: 20061208
  Serious: Yes (Other)
  Sender: FDA-Public Use
  Company Number: PHBS2006IT13802

PATIENT
  Age: 72 Year
  Sex: Female

DRUGS (6)
  1. ZOLEDRONIC ACID [Suspect]
     Indication: LUNG NEOPLASM MALIGNANT
     Route: 065
  2. GEMCITABINE [Concomitant]
     Route: 065
  3. CISPLATIN [Concomitant]
     Route: 065
  4. PACLITAXEL [Concomitant]
     Route: 065
  5. DOCETAXEL [Concomitant]
     Route: 065
  6. GEFITINIB [Concomitant]
     Route: 065

REACTIONS (3)
  - INFECTION [None]
  - OSTEONECROSIS [None]
  - SEQUESTRECTOMY [None]
